FAERS Safety Report 15254701 (Version 1)
Quarter: 2018Q4

REPORT INFORMATION
  Report Type: Spontaneous
  Country: US (occurrence: US)
  Receive Date: 20180808
  Receipt Date: 20180808
  Transmission Date: 20190204
  Serious: No
  Sender: FDA-Public Use
  Company Number: US-SA-2018SA211783

PATIENT
  Sex: Female

DRUGS (4)
  1. SEVELAMER CARBONATE. [Suspect]
     Active Substance: SEVELAMER CARBONATE
  2. RENVELA [Suspect]
     Active Substance: SEVELAMER CARBONATE
     Dosage: UNK
     Dates: start: 201712
  3. ALUMINUM HYDROXIDE [ALUMINIUM HYDROXIDE] [Suspect]
     Active Substance: ALUMINUM HYDROXIDE
     Indication: BLOOD PHOSPHORUS ABNORMAL
  4. PHOSLO [Suspect]
     Active Substance: CALCIUM ACETATE
     Indication: BLOOD PHOSPHORUS ABNORMAL

REACTIONS (1)
  - Drug ineffective [Unknown]
